FAERS Safety Report 10009365 (Version 2)
Quarter: 2014Q1

REPORT INFORMATION
  Report Type: Spontaneous
  Country: US (occurrence: US)
  Receive Date: 20140313
  Receipt Date: 20140313
  Transmission Date: 20141002
  Serious: No
  Sender: FDA-Public Use
  Company Number: US-GILEAD-2013-0076634

PATIENT
  Sex: Female

DRUGS (3)
  1. LETAIRIS [Suspect]
     Indication: PULMONARY HYPERTENSION
     Dosage: 10 MG, QD
     Dates: start: 20120509
  2. LETAIRIS [Suspect]
     Indication: COLLAGEN-VASCULAR DISEASE
  3. WARFARIN [Concomitant]

REACTIONS (3)
  - Cough [Unknown]
  - Fatigue [Unknown]
  - Dyspnoea [Unknown]
